FAERS Safety Report 9209659 (Version 1)
Quarter: 2013Q2

REPORT INFORMATION
  Report Type: Spontaneous
  Country: US (occurrence: None)
  Receive Date: 20130403
  Receipt Date: 20130403
  Transmission Date: 20140414
  Serious: No
  Sender: FDA-Public Use
  Company Number: None

PATIENT
  Age: 64 Year
  Sex: Female

DRUGS (2)
  1. LORAZEPAM [Suspect]
     Indication: INSOMNIA
     Dosage: 2 TABS HS PRN PO
  2. LORAZEPAM [Suspect]
     Indication: ANXIETY
     Dosage: 2 TABS HS PRN PO

REACTIONS (2)
  - Product substitution issue [None]
  - Therapeutic product ineffective [None]
